FAERS Safety Report 15452829 (Version 3)
Quarter: 2018Q4

REPORT INFORMATION
  Report Type: Spontaneous
  Country: US (occurrence: US)
  Receive Date: 20181001
  Receipt Date: 20181012
  Transmission Date: 20190204
  Serious: Yes (Life-Threatening, Hospitalization, Other)
  Sender: FDA-Public Use
  Company Number: US-JNJFOC-20180932618

PATIENT
  Age: 75 Year
  Sex: Female

DRUGS (13)
  1. LEVOFLOXACIN. [Suspect]
     Active Substance: LEVOFLOXACIN
     Indication: UPPER RESPIRATORY TRACT INFECTION
     Route: 048
     Dates: start: 201102
  2. PARACETAMOL [Concomitant]
     Active Substance: ACETAMINOPHEN
     Route: 065
  3. OXYCODONE [Concomitant]
     Active Substance: OXYCODONE
     Route: 065
  4. PREDNISONE. [Concomitant]
     Active Substance: PREDNISONE
     Route: 065
  5. METHOCARBAMOL. [Concomitant]
     Active Substance: METHOCARBAMOL
     Route: 065
  6. MOMETASONE FUROATE. [Concomitant]
     Active Substance: MOMETASONE FUROATE
     Route: 065
  7. PANTOPRAZOLE [Concomitant]
     Active Substance: PANTOPRAZOLE
     Route: 065
  8. HYDROCHLOROTHIAZIDE. [Concomitant]
     Active Substance: HYDROCHLOROTHIAZIDE
     Route: 065
  9. IBUPROFEN. [Concomitant]
     Active Substance: IBUPROFEN
     Route: 065
  10. LORATADINE. [Concomitant]
     Active Substance: LORATADINE
     Route: 065
  11. CALCIUM CARBONATE. [Concomitant]
     Active Substance: CALCIUM CARBONATE
     Route: 065
  12. TOPIRAMATE. [Concomitant]
     Active Substance: TOPIRAMATE
     Route: 065
  13. OLANZAPINE. [Concomitant]
     Active Substance: OLANZAPINE
     Route: 065

REACTIONS (1)
  - Acquired haemophilia [Recovered/Resolved]

NARRATIVE: CASE EVENT DATE: 201104
